FAERS Safety Report 5031047-2 (Version None)
Quarter: 2006Q2

REPORT INFORMATION
  Report Type: 
  Country: None (occurrence: None)
  Receive Date: 20060615
  Receipt Date: 20060601
  Transmission Date: 20061013
  Serious: Yes (Death)
  Sender: FDA-Public Use
  Company Number: 2006RR-02518

PATIENT
  Age: 30 Year
  Sex: Male

DRUGS (3)
  1. PREDNISOLONE [Suspect]
     Indication: COLITIS ULCERATIVE
     Dosage: 70 MG QD
  2. MESALAMINE [Suspect]
     Indication: COLITIS ULCERATIVE
     Dosage: 2 G QD
  3. PROCTO-KIT (HYDROCORTISONE) KIT [Suspect]
     Indication: COLITIS ULCERATIVE
     Dosage: 200 MG QID

REACTIONS (13)
  - ACUTE RESPIRATORY DISTRESS SYNDROME [None]
  - BRAIN OEDEMA [None]
  - CARDIAC ARREST [None]
  - CLOSTRIDIAL INFECTION [None]
  - COMPARTMENT SYNDROME [None]
  - DISSEMINATED INTRAVASCULAR COAGULATION [None]
  - GAS GANGRENE [None]
  - HAEMODIALYSIS [None]
  - LIVER DISORDER [None]
  - MULTI-ORGAN FAILURE [None]
  - MYOCARDITIS [None]
  - RHABDOMYOLYSIS [None]
  - SEPTIC SHOCK [None]
